FAERS Safety Report 24435223 (Version 1)
Quarter: 2024Q4

REPORT INFORMATION
  Report Type: Spontaneous
  Country: CN (occurrence: CN)
  Receive Date: 20241015
  Receipt Date: 20241015
  Transmission Date: 20250115
  Serious: Yes (Hospitalization)
  Sender: ABBVIE
  Company Number: CN-ABBVIE-5958636

PATIENT
  Age: 63 Year
  Sex: Male
  Weight: 59 kg

DRUGS (6)
  1. VENCLEXTA [Suspect]
     Active Substance: VENETOCLAX
     Indication: Full blood count decreased
     Dosage: 400 MILLIGRAM D3-D28
     Route: 048
     Dates: start: 20240905
  2. VENCLEXTA [Suspect]
     Active Substance: VENETOCLAX
     Indication: Full blood count decreased
     Dosage: 100 MILLIGRAM D1
     Route: 048
     Dates: start: 20240903, end: 20240903
  3. VENCLEXTA [Suspect]
     Active Substance: VENETOCLAX
     Indication: Full blood count decreased
     Dosage: 200 MILLIGRAM D2
     Route: 048
     Dates: start: 20240904, end: 20240904
  4. NALOXONE HYDROCHLORIDE [Suspect]
     Active Substance: NALOXONE HYDROCHLORIDE
     Indication: Full blood count decreased
     Dosage: 10 MILLIGRAM
     Route: 041
     Dates: start: 20240910, end: 20240913
  5. DECITABINE [Concomitant]
     Active Substance: DECITABINE
     Indication: Product used for unknown indication
     Dosage: D1-D5
  6. DECITABINE [Concomitant]
     Active Substance: DECITABINE
     Indication: Product used for unknown indication
     Dosage: D8-D12

REACTIONS (1)
  - Myelosuppression [Recovering/Resolving]

NARRATIVE: CASE EVENT DATE: 20240915
